FAERS Safety Report 7150273-X (Version None)
Quarter: 2010Q4

REPORT INFORMATION
  Report Type: 
  Country: None (occurrence: None)
  Receive Date: 20101210
  Receipt Date: 20101202
  Transmission Date: 20110411
  Serious: Yes (Other)
  Sender: FDA-Public Use
  Company Number: JP-BAYER-2010-000613

PATIENT
  Age: 77 Year
  Sex: Male

DRUGS (2)
  1. MAGNEVIST [Suspect]
     Dosage: 10 ML, UNK
     Route: 042
     Dates: start: 20101129, end: 20101129
  2. SOLU-CORTEF [Suspect]
     Indication: LARYNGEAL OEDEMA
     Dosage: 100 MG, UNK
     Route: 042
     Dates: start: 20101129, end: 20101129

REACTIONS (1)
  - LARYNGEAL OEDEMA [None]
